FAERS Safety Report 20127018 (Version 3)
Quarter: 2022Q1

REPORT INFORMATION
  Report Type: Spontaneous
  Country: IN (occurrence: IN)
  Receive Date: 20211129
  Receipt Date: 20220325
  Transmission Date: 20220423
  Serious: Yes (Other)
  Sender: FDA-Public Use
  Company Number: IN-PFIZER INC-2021860871

PATIENT
  Age: 61 Year
  Sex: Female

DRUGS (4)
  1. PALBOCICLIB [Suspect]
     Active Substance: PALBOCICLIB
     Indication: Breast cancer
     Dosage: 125 MG
     Route: 048
     Dates: start: 202009, end: 20211014
  2. PALBOCICLIB [Suspect]
     Active Substance: PALBOCICLIB
     Dosage: 100 MG, CYCLIC (DAILY FOR 21 DAYS THEN 7 DAYS GAP)/OD
     Route: 048
     Dates: start: 20211014
  3. LETROZ [Concomitant]
     Dosage: 2.5 MG, DAILY
  4. VITAMIN D3 [Concomitant]
     Active Substance: CHOLECALCIFEROL
     Dosage: 60 K ONCE 15 DAYS

REACTIONS (5)
  - Electrocardiogram QT prolonged [Unknown]
  - Discomfort [Unknown]
  - Fatigue [Unknown]
  - Alopecia [Unknown]
  - Blood pressure systolic increased [Unknown]
